FAERS Safety Report 18371380 (Version 1)
Quarter: 2020Q4

REPORT INFORMATION
  Report Type: Spontaneous
  Country: US (occurrence: US)
  Receive Date: 20201012
  Receipt Date: 20201012
  Transmission Date: 20210114
  Serious: Yes (Other)
  Sender: FDA-Public Use
  Company Number: US-BAYER-2020-214351

PATIENT

DRUGS (1)
  1. CORICIDIN HBP CHEST CONGESTION AND COUGH [Suspect]
     Active Substance: DEXTROMETHORPHAN HYDROBROMIDE\GUAIFENESIN
     Indication: CARDIAC DISORDER
     Dosage: UNK

REACTIONS (2)
  - Product use in unapproved indication [Unknown]
  - Coeliac disease [None]

NARRATIVE: CASE EVENT DATE: 2020
